FAERS Safety Report 24842866 (Version 2)
Quarter: 2025Q2

REPORT INFORMATION
  Report Type: Report from Study
  Country: US (occurrence: US)
  Receive Date: 20250115
  Receipt Date: 20250416
  Transmission Date: 20250716
  Serious: Yes (Other)
  Sender: ESTEVE
  Company Number: US-ORG100014127-2020000911

PATIENT
  Age: 47 Year
  Sex: Female

DRUGS (12)
  1. LYSODREN [Suspect]
     Active Substance: MITOTANE
     Indication: Adrenal gland cancer
     Dates: start: 20181204
  2. LYSODREN [Suspect]
     Active Substance: MITOTANE
     Dates: start: 20201117
  3. MYRBETRIQ [Concomitant]
     Active Substance: MIRABEGRON
  4. COMPAZINE [Concomitant]
     Active Substance: PROCHLORPERAZINE MALEATE
  5. FLUDROCORTISONE [Concomitant]
     Active Substance: FLUDROCORTISONE
  6. TRAZODONE [Concomitant]
     Active Substance: TRAZODONE HYDROCHLORIDE
  7. Hydrocort Tablet [Concomitant]
  8. DULOXETINE [Concomitant]
     Active Substance: DULOXETINE
  9. CLONAZEPAM [Concomitant]
     Active Substance: CLONAZEPAM
  10. BUSPIRONE [Concomitant]
     Active Substance: BUSPIRONE HYDROCHLORIDE
  11. GABAPENTIN [Suspect]
     Active Substance: GABAPENTIN
  12. MORPHINE [Suspect]
     Active Substance: MORPHINE

REACTIONS (7)
  - Neuropathy peripheral [Not Recovered/Not Resolved]
  - Fatigue [Not Recovered/Not Resolved]
  - Headache [Not Recovered/Not Resolved]
  - Somnolence [Not Recovered/Not Resolved]
  - Nausea [Not Recovered/Not Resolved]
  - Balance disorder [Not Recovered/Not Resolved]
  - Bone pain [Not Recovered/Not Resolved]

NARRATIVE: CASE EVENT DATE: 20181210
